FAERS Safety Report 15580295 (Version 1)
Quarter: 2018Q4

REPORT INFORMATION
  Report Type: Report from Study
  Country: CA (occurrence: CA)
  Receive Date: 20181102
  Receipt Date: 20181102
  Transmission Date: 20190205
  Serious: Yes (Other)
  Sender: FDA-Public Use
  Company Number: CA-JNJFOC-20181037220

PATIENT
  Age: 34 Year
  Sex: Female
  Weight: 103 kg

DRUGS (1)
  1. REMICADE [Suspect]
     Active Substance: INFLIXIMAB
     Indication: CROHN^S DISEASE
     Route: 042
     Dates: start: 20070629

REACTIONS (3)
  - Psoriasis [Recovering/Resolving]
  - Systemic lupus erythematosus [Recovering/Resolving]
  - Furuncle [Unknown]

NARRATIVE: CASE EVENT DATE: 2018
